FAERS Safety Report 25706142 (Version 1)
Quarter: 2025Q3

REPORT INFORMATION
  Report Type: Spontaneous
  Country: CO (occurrence: CO)
  Receive Date: 20250820
  Receipt Date: 20250820
  Transmission Date: 20251021
  Serious: Yes (Death, Hospitalization)
  Sender: NOVO NORDISK
  Company Number: CO-NOVOPROD-1499837

PATIENT
  Age: 70 Year
  Sex: Female

DRUGS (1)
  1. RYBELSUS [Suspect]
     Active Substance: SEMAGLUTIDE
     Indication: Type 2 diabetes mellitus
     Dosage: 3 MG, QD
     Route: 048

REACTIONS (2)
  - Fall [Fatal]
  - Head injury [Fatal]

NARRATIVE: CASE EVENT DATE: 20250808
